FAERS Safety Report 6985746-3 (Version None)
Quarter: 2010Q3

REPORT INFORMATION
  Report Type: 
  Country: None (occurrence: None)
  Receive Date: 20100915
  Receipt Date: 20100902
  Transmission Date: 20110219
  Serious: Yes (Hospitalization)
  Sender: FDA-Public Use
  Company Number: CA-ELI_LILLY_AND_COMPANY-CA201009001499

PATIENT
  Age: 56 Year
  Sex: Female

DRUGS (11)
  1. FORTEO [Suspect]
     Indication: OSTEOPOROSIS
     Dosage: 20 UG, DAILY (1/D)
     Route: 058
     Dates: start: 20090916, end: 20100615
  2. CORDARONE [Concomitant]
     Dosage: UNK, UNKNOWN
     Route: 065
  3. ATACAND [Concomitant]
     Dosage: UNK, UNKNOWN
     Route: 065
  4. NOVO-SEMIDE [Concomitant]
     Dosage: UNK, UNKNOWN
     Route: 065
  5. ALDACTONE [Concomitant]
     Dosage: UNK, UNKNOWN
     Route: 065
  6. PREDNISONE [Concomitant]
     Dosage: UNK, UNKNOWN
     Route: 065
  7. NEXIUM [Concomitant]
     Dosage: UNK, UNKNOWN
     Route: 065
  8. SYNTHROID [Concomitant]
     Dosage: UNK, UNKNOWN
     Route: 065
  9. CALCITE [Concomitant]
     Dosage: UNK, UNKNOWN
     Route: 065
  10. COUMADIN [Concomitant]
     Dosage: UNK, UNKNOWN
     Route: 065
  11. FERROUS SULFATE [Concomitant]

REACTIONS (4)
  - ASTHENIA [None]
  - CARDIAC DISORDER [None]
  - DYSPNOEA [None]
  - FATIGUE [None]
